FAERS Safety Report 16943218 (Version 1)
Quarter: 2019Q4

REPORT INFORMATION
  Report Type: Report from Study
  Country: None (occurrence: PR)
  Receive Date: 20191021
  Receipt Date: 20191021
  Transmission Date: 20200122
  Serious: Yes (Hospitalization, Other)
  Sender: FDA-Public Use
  Company Number: PR-ABBVIE-19K-131-2967942-00

PATIENT
  Age: 65 Year
  Sex: Male
  Weight: 67.19 kg

DRUGS (1)
  1. HUMIRA [Suspect]
     Active Substance: ADALIMUMAB
     Indication: CROHN^S DISEASE
     Dosage: 40MG/0.4ML
     Route: 058
     Dates: start: 20190103

REACTIONS (6)
  - Dysuria [Recovering/Resolving]
  - Nephrolithiasis [Unknown]
  - Cataract [Unknown]
  - Headache [Recovering/Resolving]
  - Asthenia [Recovering/Resolving]
  - Urinary tract infection [Unknown]

NARRATIVE: CASE EVENT DATE: 2019
